FAERS Safety Report 5421853-4 (Version None)
Quarter: 2007Q3

REPORT INFORMATION
  Report Type: 
  Country: None (occurrence: None)
  Receive Date: 20070817
  Receipt Date: 20060821
  Transmission Date: 20080115
  Serious: Yes (Other)
  Sender: FDA-Public Use
  Company Number: USBAX-L-20070014

PATIENT
  Sex: Male

DRUGS (6)
  1. NAVELBINE [Suspect]
     Indication: PROSTATE CANCER
     Dosage: 20 MG/M2 UNK IV
     Route: 042
  2. FLUOROURACIL [Suspect]
     Indication: PROSTATE CANCER
     Dosage: 350 MG/M2 UNK IV
     Route: 042
  3. FOLINIC ACID [Concomitant]
     Indication: PROSTATE CANCER
     Dosage: 100 MG/M2 UNK IV
     Route: 042
  4. DEXAMETHASONE 0.5MG TAB [Concomitant]
  5. METOCLOPRAMIDE [Concomitant]
  6. DEXAMETHASONE 0.5MG TAB [Concomitant]

REACTIONS (1)
  - NEUTROPENIA [None]
